FAERS Safety Report 7349826-5 (Version None)
Quarter: 2011Q1

REPORT INFORMATION
  Report Type: 
  Country: None (occurrence: None)
  Receive Date: 20110222
  Receipt Date: 20110210
  Transmission Date: 20110831
  Serious: Yes (Hospitalization)
  Sender: FDA-Public Use
  Company Number: 2011027559

PATIENT
  Age: 81 Year
  Sex: Female
  Weight: 40.5969 kg

DRUGS (5)
  1. VIVAGLOBIN [Suspect]
     Indication: IMMUNODEFICIENCY COMMON VARIABLE
     Route: 058
  2. XOLAIR [Concomitant]
  3. VIVAGLOBIN [Suspect]
  4. ZYVOX [Concomitant]
  5. BACTRIM [Concomitant]

REACTIONS (2)
  - STAPHYLOCOCCAL INFECTION [None]
  - CHEST PAIN [None]
